FAERS Safety Report 16856470 (Version 1)
Quarter: 2019Q3

REPORT INFORMATION
  Report Type: Spontaneous
  Country: US (occurrence: US)
  Receive Date: 20190926
  Receipt Date: 20190926
  Transmission Date: 20191005
  Serious: No
  Sender: FDA-Public Use
  Company Number: US-ALYVANT THERAPEUTICS, INC.-2019ALY00005

PATIENT
  Age: 84 Year
  Sex: Male
  Weight: 68.03 kg

DRUGS (4)
  1. UNSPECIFED MEDICATION FOR HEART CONDITION [Concomitant]
  2. OXYBUTYNIN. [Concomitant]
     Active Substance: OXYBUTYNIN CHLORIDE
  3. UNSPECIFED MEDICATION FOR STROKE [Concomitant]
  4. NOCTIVA [Suspect]
     Active Substance: DESMOPRESSIN ACETATE
     Indication: NOCTURIA
     Dosage: 1.66 ?G, 1X/DAY 30 MINUTES BEFORE BED
     Route: 045
     Dates: start: 2019, end: 201908

REACTIONS (1)
  - Blood sodium decreased [Unknown]

NARRATIVE: CASE EVENT DATE: 201908
